FAERS Safety Report 20294352 (Version 8)
Quarter: 2025Q4

REPORT INFORMATION
  Report Type: Report from Study
  Country: KR (occurrence: KR)
  Receive Date: 20220104
  Receipt Date: 20251219
  Transmission Date: 20260119
  Serious: Yes (Death, Life-Threatening, Hospitalization, Other)
  Sender: ABBVIE
  Company Number: KR-ABBVIE-22K-090-4219602-00

PATIENT
  Age: 74 Year
  Sex: Female
  Weight: 67 kg

DRUGS (45)
  1. VENCLEXTA [Suspect]
     Active Substance: VENETOCLAX
     Indication: Acute myeloid leukaemia
     Route: 048
     Dates: start: 20211111, end: 20211111
  2. VENCLEXTA [Suspect]
     Active Substance: VENETOCLAX
     Indication: Acute myeloid leukaemia
     Route: 048
     Dates: start: 20211112, end: 20211112
  3. VENCLEXTA [Suspect]
     Active Substance: VENETOCLAX
     Indication: Acute myeloid leukaemia
     Route: 048
     Dates: start: 20211113, end: 20211113
  4. VENCLEXTA [Suspect]
     Active Substance: VENETOCLAX
     Indication: Acute myeloid leukaemia
     Route: 048
     Dates: start: 20211114, end: 20211208
  5. DEBIKIN [Concomitant]
     Indication: Acute myeloid leukaemia
     Route: 042
     Dates: start: 20211111, end: 20211115
  6. FASTURTEC [Concomitant]
     Active Substance: RASBURICASE
     Indication: Prophylaxis
     Route: 042
     Dates: start: 20211111, end: 20211111
  7. MAXIPIME [Concomitant]
     Active Substance: CEFEPIME HYDROCHLORIDE
     Indication: Pyrexia
     Dosage: TIME INTERVAL: 0.33333333 DAYS: START DATE TEXT: 1
     Route: 042
     Dates: start: 20211108, end: 20211116
  8. MAXIPIME [Concomitant]
     Active Substance: CEFEPIME HYDROCHLORIDE
     Indication: Pyrexia
     Dosage: TIME INTERVAL: 0.33333333 DAYS
     Route: 042
     Dates: start: 20211206, end: 20211217
  9. NORVASC [Concomitant]
     Active Substance: AMLODIPINE BESYLATE
     Indication: Hypertension
     Route: 048
     Dates: start: 20211105, end: 20211216
  10. Inno.n losartan [Concomitant]
     Indication: Hypertension
     Route: 048
     Dates: start: 20211105, end: 20211206
  11. METOCLOPRAMIDE HYDROCHLORIDE [Concomitant]
     Active Substance: METOCLOPRAMIDE HYDROCHLORIDE
     Indication: Nausea
     Dosage: TIME INTERVAL: AS NECESSARY
     Route: 042
     Dates: start: 20211117, end: 20211218
  12. Codeine guju [Concomitant]
     Indication: Pulmonary hypertension
     Route: 048
     Dates: start: 20211208, end: 20211216
  13. Codeine guju [Concomitant]
     Indication: Pulmonary hypertension
     Route: 048
     Dates: start: 20211130, end: 20211207
  14. LINAGLIPTIN [Concomitant]
     Active Substance: LINAGLIPTIN
     Indication: Diabetes mellitus
     Route: 048
     Dates: start: 20211105, end: 20211116
  15. DIABEX [Concomitant]
     Active Substance: METFORMIN HYDROCHLORIDE
     Indication: Diabetes mellitus
     Route: 048
     Dates: start: 20211105, end: 20211216
  16. LASIX [Concomitant]
     Active Substance: FUROSEMIDE
     Indication: Pulmonary hypertension
     Route: 048
     Dates: start: 20211111, end: 20211208
  17. LASIX [Concomitant]
     Active Substance: FUROSEMIDE
     Indication: Pulmonary hypertension
     Route: 048
     Dates: start: 20211208, end: 20211216
  18. Vacrax [Concomitant]
     Indication: Infection prophylaxis
     Route: 048
     Dates: start: 20211111, end: 20220102
  19. NOXAFIL [Concomitant]
     Active Substance: POSACONAZOLE
     Indication: Infection prophylaxis
     Route: 048
     Dates: start: 20211111, end: 20211111
  20. NOXAFIL [Concomitant]
     Active Substance: POSACONAZOLE
     Indication: Infection prophylaxis
     Route: 048
     Dates: start: 20211112, end: 20220101
  21. SULFAMETHOXAZOLE\TRIMETHOPRIM [Concomitant]
     Active Substance: SULFAMETHOXAZOLE\TRIMETHOPRIM
     Indication: Infection prophylaxis
     Route: 048
     Dates: start: 20211111, end: 20211216
  22. ALLOPURINOL [Concomitant]
     Active Substance: ALLOPURINOL
     Indication: Prophylaxis
     Route: 048
     Dates: start: 20211111, end: 20211202
  23. SPIRONOLACTONE [Concomitant]
     Active Substance: SPIRONOLACTONE
     Indication: Pulmonary hypertension
     Route: 048
     Dates: start: 20211130, end: 20211207
  24. SPIRONOLACTONE [Concomitant]
     Active Substance: SPIRONOLACTONE
     Indication: Pulmonary hypertension
     Route: 048
     Dates: start: 20211208, end: 20211216
  25. SPIRONOLACTONE [Concomitant]
     Active Substance: SPIRONOLACTONE
     Indication: Pulmonary hypertension
     Route: 048
     Dates: start: 20211130, end: 20211207
  26. LENOGRASTIM [Concomitant]
     Active Substance: LENOGRASTIM
     Indication: Acute myeloid leukaemia
     Route: 042
     Dates: start: 20211216, end: 20211221
  27. AMINO ACIDS\DEXTROSE\ELECTROLYTES NOS\SOYBEAN OIL [Concomitant]
     Active Substance: AMINO ACIDS\DEXTROSE\ELECTROLYTES NOS\SOYBEAN OIL
     Indication: Prophylaxis
     Route: 042
     Dates: start: 20211219, end: 20211231
  28. NEXIUM [Concomitant]
     Active Substance: ESOMEPRAZOLE MAGNESIUM
     Indication: Gastrointestinal disorder prophylaxis
     Route: 042
     Dates: start: 20211225, end: 20220102
  29. VITAMINS [Concomitant]
     Active Substance: VITAMINS
     Indication: Prophylaxis
     Dosage: 1VIAL
     Route: 042
     Dates: start: 20211222, end: 20211231
  30. MEGACE F [Concomitant]
     Indication: Decreased appetite
     Route: 048
     Dates: start: 20211212, end: 20211216
  31. LEVOFLOXACIN [Concomitant]
     Active Substance: LEVOFLOXACIN
     Indication: Infection prophylaxis
     Route: 048
     Dates: start: 20211116, end: 20211205
  32. PROPACETAMOL HYDROCHLORIDE [Concomitant]
     Active Substance: PROPACETAMOL HYDROCHLORIDE
     Indication: Pyrexia
     Dosage: TIME INTERVAL: AS NECESSARY
     Route: 042
     Dates: start: 20211206, end: 20211231
  33. TASNA [Concomitant]
     Indication: Metabolic acidosis
     Dosage: TIME INTERVAL: 0.33333333 DAYS
     Route: 048
     Dates: start: 20211218, end: 20211226
  34. HERBALS [Concomitant]
     Active Substance: HERBALS
     Indication: Nausea
     Route: 048
     Dates: start: 20211116, end: 20211216
  35. DESOWEN [Concomitant]
     Active Substance: DESONIDE
     Indication: Dry skin
     Dosage: TIME INTERVAL: AS NECESSARY: UNIT DOSE: UNKNOWN ML, ROUTE: DERM
     Dates: start: 20211116
  36. TRANEXAMIC ACID [Concomitant]
     Active Substance: TRANEXAMIC ACID
     Indication: Mouth haemorrhage
     Dosage: TIME INTERVAL: 0.33333333 DAYS
     Route: 042
     Dates: start: 20211217, end: 20220102
  37. Godex [Concomitant]
     Indication: Liver function test increased
     Route: 048
     Dates: start: 20211118, end: 20211216
  38. Ursa daewoong [Concomitant]
     Indication: Liver function test increased
     Dosage: TIME INTERVAL: 0.33333333 DAYS
     Route: 048
     Dates: start: 20211118, end: 20211216
  39. MELATONIN [Concomitant]
     Active Substance: MELATONIN
     Indication: Insomnia
     Route: 048
     Dates: start: 20211127, end: 20211207
  40. HARMONILAN [Concomitant]
     Indication: Decreased appetite
     Dosage: UNIT DOSE: 1 BAG
     Route: 048
     Dates: start: 20211128, end: 20211216
  41. K contin continus [Concomitant]
     Indication: Blood potassium decreased
     Dosage: TIME INTERVAL: 0.33333333 DAYS
     Route: 048
     Dates: start: 20211122, end: 20211125
  42. BATROXOBIN [Concomitant]
     Active Substance: BATROXOBIN
     Indication: Mouth haemorrhage
     Dosage: TIME INTERVAL: 0.33333333 DAYS
     Route: 042
     Dates: start: 20211217, end: 20220102
  43. MOSAPRIDE CITRATE [Concomitant]
     Active Substance: MOSAPRIDE CITRATE
     Indication: Dyspepsia
     Dosage: TIME INTERVAL: 0.33333333 DAYS
     Route: 048
     Dates: start: 20211122, end: 20211216
  44. ATIVAN [Concomitant]
     Active Substance: LORAZEPAM
     Indication: Insomnia
     Route: 048
     Dates: start: 20211202, end: 20211216
  45. ITOPRIDE [Concomitant]
     Active Substance: ITOPRIDE
     Indication: Dyspepsia
     Dosage: TIME INTERVAL: 0.33333333 DAYS
     Route: 048
     Dates: start: 20211212, end: 20211217

REACTIONS (2)
  - Pneumonia [Fatal]
  - Acute kidney injury [Not Recovered/Not Resolved]

NARRATIVE: CASE EVENT DATE: 20211217
